FAERS Safety Report 13687783 (Version 4)
Quarter: 2017Q4

REPORT INFORMATION
  Report Type: Spontaneous
  Country: FR (occurrence: FR)
  Receive Date: 20170625
  Receipt Date: 20171114
  Transmission Date: 20180320
  Serious: Yes (Hospitalization)
  Sender: FDA-Public Use
  Company Number: FR-ALSI-201700171

PATIENT
  Age: 80 Year
  Sex: Male

DRUGS (1)
  1. OXYGEN MEDICINAL LIQUID [Suspect]
     Active Substance: OXYGEN
     Indication: PRODUCT USED FOR UNKNOWN INDICATION
     Route: 055

REACTIONS (4)
  - Intentional product misuse [Not Recovered/Not Resolved]
  - Frostbite [Not Recovered/Not Resolved]
  - Sensory loss [Not Recovered/Not Resolved]
  - Product quality issue [Not Recovered/Not Resolved]

NARRATIVE: CASE EVENT DATE: 20170612
